FAERS Safety Report 11614286 (Version 2)
Quarter: 2016Q1

REPORT INFORMATION
  Report Type: Report from Study
  Country: US (occurrence: US)
  Receive Date: 20151008
  Receipt Date: 20160212
  Transmission Date: 20160525
  Serious: Yes (Other)
  Sender: FDA-Public Use
  Company Number: US-AMGEN-USASP2015104421

PATIENT
  Age: 24 Year
  Sex: Female

DRUGS (1)
  1. ENBREL [Suspect]
     Active Substance: ETANERCEPT
     Indication: RHEUMATOID ARTHRITIS
     Dosage: UNK
     Route: 065
     Dates: start: 20150928

REACTIONS (8)
  - Bedridden [Unknown]
  - Pulmonary oedema [Unknown]
  - Chest discomfort [Unknown]
  - Arrhythmia [Unknown]
  - Malaise [Unknown]
  - Mobility decreased [Unknown]
  - Influenza like illness [Unknown]
  - Productive cough [Unknown]

NARRATIVE: CASE EVENT DATE: 2015
